FAERS Safety Report 17114091 (Version 1)
Quarter: 2019Q4

REPORT INFORMATION
  Report Type: Spontaneous
  Country: US (occurrence: US)
  Receive Date: 20191205
  Receipt Date: 20191205
  Transmission Date: 20200122
  Serious: Yes (Hospitalization)
  Sender: FDA-Public Use
  Company Number: US-MALLINCKRODT-T201907840

PATIENT
  Age: 1 Month
  Sex: Male

DRUGS (1)
  1. METHADONE [Suspect]
     Active Substance: METHADONE HYDROCHLORIDE
     Indication: PRODUCT USED FOR UNKNOWN INDICATION
     Dosage: UNK
     Route: 065

REACTIONS (8)
  - Tremor [Unknown]
  - Lethargy [Unknown]
  - Somnolence [Unknown]
  - Respiratory arrest [Unknown]
  - Exposure via breast milk [Unknown]
  - Irritability [Unknown]
  - Agitation [Unknown]
  - Diarrhoea [Unknown]
